FAERS Safety Report 6604573-X (Version None)
Quarter: 2010Q1

REPORT INFORMATION
  Report Type: 
  Country: None (occurrence: None)
  Receive Date: 20100226
  Receipt Date: 20091203
  Transmission Date: 20100710
  Serious: Yes (Other)
  Sender: FDA-Public Use
  Company Number: A0833190A

PATIENT
  Age: 14 Year
  Sex: Male

DRUGS (3)
  1. LAMICTAL CD [Suspect]
     Dosage: 25MG PER DAY
     Route: 048
     Dates: start: 20090101, end: 20090101
  2. FOCALIN [Concomitant]
  3. DEPAKOTE [Concomitant]

REACTIONS (1)
  - STEVENS-JOHNSON SYNDROME [None]
